FAERS Safety Report 16846298 (Version 2)
Quarter: 2019Q4

REPORT INFORMATION
  Report Type: Spontaneous
  Country: US (occurrence: US)
  Receive Date: 20190924
  Receipt Date: 20191108
  Transmission Date: 20200122
  Serious: No
  Sender: FDA-Public Use
  Company Number: US-SA-2019SA264734

PATIENT
  Age: 80 Year
  Sex: Female

DRUGS (1)
  1. PRALUENT [Suspect]
     Active Substance: ALIROCUMAB
     Indication: HYPERTENSION
     Dosage: 75 MG/ML, QOW
     Route: 058
     Dates: start: 20190618

REACTIONS (14)
  - Memory impairment [Not Recovered/Not Resolved]
  - Cough [Not Recovered/Not Resolved]
  - Coagulopathy [Unknown]
  - Feeling hot [Unknown]
  - Confusional state [Not Recovered/Not Resolved]
  - Asthma [Not Recovered/Not Resolved]
  - Mucosal ulceration [Unknown]
  - Rash [Unknown]
  - Pulmonary mass [Unknown]
  - Haemoptysis [Recovering/Resolving]
  - Influenza like illness [Unknown]
  - Chills [Unknown]
  - Hypersensitivity [Not Recovered/Not Resolved]
  - Product use in unapproved indication [Unknown]

NARRATIVE: CASE EVENT DATE: 2019
